FAERS Safety Report 17283772 (Version 1)
Quarter: 2020Q1

REPORT INFORMATION
  Report Type: Spontaneous
  Country: US (occurrence: US)
  Receive Date: 20200117
  Receipt Date: 20200117
  Transmission Date: 20200409
  Serious: Yes (Other)
  Sender: FDA-Public Use
  Company Number: US-CELGENEUS-USA-20200103407

PATIENT
  Sex: Female

DRUGS (2)
  1. POMALYST [Suspect]
     Active Substance: POMALIDOMIDE
     Indication: PLASMA CELL MYELOMA
     Dosage: 4 MILLIGRAM
     Route: 048
     Dates: start: 20191019
  2. POMALYST [Suspect]
     Active Substance: POMALIDOMIDE
     Indication: PLASMACYTOMA

REACTIONS (2)
  - Diabetes mellitus [Unknown]
  - Hypoglycaemia [Unknown]
